FAERS Safety Report 9164847 (Version 1)
Quarter: 2013Q1

REPORT INFORMATION
  Report Type: Spontaneous
  Country: US (occurrence: US)
  Receive Date: 20130315
  Receipt Date: 20130315
  Transmission Date: 20140127
  Serious: No
  Sender: FDA-Public Use
  Company Number: US-BAYER-2013-019604

PATIENT
  Age: 73 Year
  Sex: Male

DRUGS (3)
  1. LEVITRA [Suspect]
     Indication: ERECTILE DYSFUNCTION
     Dosage: 10 MG, OW
     Route: 048
     Dates: start: 2006
  2. LEVOTHYROXINE [Concomitant]
     Indication: THYROID DISORDER
  3. GABAPENTIN [Concomitant]
     Indication: NEUROPATHY PERIPHERAL

REACTIONS (2)
  - Drug ineffective [Recovered/Resolved]
  - Drug ineffective [Recovered/Resolved]
